FAERS Safety Report 6326081-6 (Version None)
Quarter: 2009Q3

REPORT INFORMATION
  Report Type: 
  Country: None (occurrence: None)
  Receive Date: 20090820
  Receipt Date: 20090806
  Transmission Date: 20100115
  Serious: Yes (Hospitalization)
  Sender: FDA-Public Use
  Company Number: 2009AL005337

PATIENT
  Age: 81 Year
  Sex: Female

DRUGS (8)
  1. AMLODIPINE BESYLATE [Suspect]
     Indication: ESSENTIAL HYPERTENSION
     Dosage: 10 MG;BID;PO
     Route: 048
     Dates: end: 20090410
  2. LISINOPRIL [Concomitant]
  3. NEXIUM [Concomitant]
  4. INSULIN [Concomitant]
  5. LASIX [Concomitant]
  6. CLEXANE [Concomitant]
  7. ROCEPHIN [Concomitant]
  8. METRONIDAZOL [Concomitant]

REACTIONS (6)
  - ANURIA [None]
  - CONDITION AGGRAVATED [None]
  - HAEMOGLOBIN DECREASED [None]
  - HYPOTENSION [None]
  - METABOLIC ACIDOSIS [None]
  - SHOCK [None]
